FAERS Safety Report 9969668 (Version 1)
Quarter: 2014Q1

REPORT INFORMATION
  Report Type: Spontaneous
  Country: US (occurrence: None)
  Receive Date: 20140130
  Receipt Date: 20140130
  Transmission Date: 20141002
  Serious: No
  Sender: FDA-Public Use
  Company Number: PHEH2013US022901

PATIENT
  Age: 63 Year
  Sex: Female

DRUGS (4)
  1. ARCAPTA (INDACATEROL) UNKNOWN [Suspect]
  2. WATER PILLS (AMMONIUM CHLORIDE, CAFFEINE) [Concomitant]
  3. CODEINE (CODEINE) [Concomitant]
  4. ALBUTEROL (SALBUTAMOL) [Concomitant]

REACTIONS (5)
  - Oesophageal pain [None]
  - Dysphonia [None]
  - Device issue [None]
  - Choking [None]
  - Drug dispensing error [None]
